FAERS Safety Report 20705501 (Version 4)
Quarter: 2022Q3

REPORT INFORMATION
  Report Type: Report from Study
  Country: CA (occurrence: CA)
  Receive Date: 20220413
  Receipt Date: 20220817
  Transmission Date: 20221027
  Serious: Yes (Hospitalization)
  Sender: FDA-Public Use
  Company Number: CA-JNJFOC-20220332940

PATIENT
  Age: 40 Year
  Sex: Male
  Weight: 102.5 kg

DRUGS (1)
  1. REMICADE [Suspect]
     Active Substance: INFLIXIMAB
     Indication: Psoriasis
     Dosage: 7.5 MG/KG?THE PATIENT RECEIVED INFUSION ON 18-MAY-2022
     Route: 041

REACTIONS (6)
  - Aortic dissection [Recovering/Resolving]
  - COVID-19 [Recovered/Resolved]
  - Incision site complication [Not Recovered/Not Resolved]
  - Psoriasis [Not Recovered/Not Resolved]
  - Blood pressure decreased [Unknown]
  - Off label use [Unknown]

NARRATIVE: CASE EVENT DATE: 20220214
